FAERS Safety Report 8508058-5 (Version None)
Quarter: 2012Q3

REPORT INFORMATION
  Report Type: 
  Country: None (occurrence: None)
  Receive Date: 20120713
  Receipt Date: 20120709
  Transmission Date: 20120928
  Serious: Yes (Hospitalization)
  Sender: FDA-Public Use
  Company Number: PHHY2012CA059653

PATIENT
  Sex: Female

DRUGS (5)
  1. PERINDOPRIL ERBUMINE [Concomitant]
     Dosage: 4 MG, UNK
  2. CALCIUM [Concomitant]
     Dosage: 500 MG, BID
     Route: 048
  3. ASPIRIN [Concomitant]
     Dosage: 80 MG, UNK
  4. ZOLEDRONOC ACID [Suspect]
     Dosage: UNK UKN, UNK
     Route: 042
     Dates: start: 20090101
  5. DROPS FOR GLAUCOMA [Concomitant]

REACTIONS (2)
  - OROPHARYNGEAL PAIN [None]
  - BACK PAIN [None]
